FAERS Safety Report 7333453-X (Version None)
Quarter: 2011Q1

REPORT INFORMATION
  Report Type: 
  Country: None (occurrence: None)
  Receive Date: 20110304
  Receipt Date: 20110222
  Transmission Date: 20110831
  Serious: Yes (Other)
  Sender: FDA-Public Use
  Company Number: PHEH2006US10883

PATIENT
  Sex: Male

DRUGS (26)
  1. HYDROCODONE BITARTRATE AND ACETAMINOPHEN [Concomitant]
  2. HYDROCHLOROTHIAZIDE [Concomitant]
  3. TEMSIROLIMUS [Concomitant]
  4. ZOLPIDEM [Concomitant]
  5. AMPICILLIN [Concomitant]
  6. SENNA [Concomitant]
  7. CEPHALEXIN [Concomitant]
     Dosage: 500 MG, UNK
  8. METHADONE [Concomitant]
  9. LEVAQUIN [Concomitant]
  10. AMBIEN [Concomitant]
  11. NORVASC [Concomitant]
     Dosage: 10 MG, UNK
  12. BUTALBITAL ACETAMINOPHEN AND CAFFEINE [Concomitant]
  13. POTASSIUM CHLORIDE [Concomitant]
  14. AMLODIPINE [Concomitant]
  15. MS CONTIN [Concomitant]
  16. ANUSOL PLUS [Concomitant]
     Indication: HAEMORRHOIDS
  17. DOCUSATE [Concomitant]
  18. ACETAMINOPHEN AND TRAMADOL HCL [Concomitant]
  19. CIPROFLOXACIN [Concomitant]
  20. MARINOL [Concomitant]
  21. ANUSOL                                  /NET/ [Concomitant]
  22. ZOMETA [Suspect]
  23. THALIDOMIDE [Concomitant]
  24. LORTAB [Concomitant]
     Dosage: 5/500
  25. AMOXICILLIN + CLAVULANIC ACID [Concomitant]
  26. DURAGESIC-50 [Concomitant]

REACTIONS (27)
  - OSTEONECROSIS OF JAW [None]
  - SWELLING [None]
  - CONSTIPATION [None]
  - INJURY [None]
  - ANXIETY [None]
  - OSTEITIS [None]
  - ORAL NEOPLASM [None]
  - PLEURAL EFFUSION [None]
  - LYMPHADENOPATHY [None]
  - HAEMOPTYSIS [None]
  - DECREASED ACTIVITY [None]
  - DYSPNOEA [None]
  - RESPIRATORY FAILURE [None]
  - ORAL INFECTION [None]
  - PURULENT DISCHARGE [None]
  - PAIN [None]
  - METASTASES TO LUNG [None]
  - METASTASES TO BONE [None]
  - METASTASES TO CENTRAL NERVOUS SYSTEM [None]
  - EXOSTOSIS [None]
  - LYMPHADENOPATHY MEDIASTINAL [None]
  - ATELECTASIS [None]
  - ANAEMIA [None]
  - FATIGUE [None]
  - PATHOLOGICAL FRACTURE [None]
  - PNEUMONIA [None]
  - PYREXIA [None]
